FAERS Safety Report 17727194 (Version 1)
Quarter: 2020Q2

REPORT INFORMATION
  Report Type: Spontaneous
  Country: GB (occurrence: GB)
  Receive Date: 20200430
  Receipt Date: 20200430
  Transmission Date: 20200714
  Serious: Yes (Death, Other)
  Sender: FDA-Public Use
  Company Number: GB-ALKEM LABORATORIES LIMITED-GB-ALKEM-2020-01416

PATIENT
  Age: 40 Year
  Sex: Male

DRUGS (13)
  1. PREGABALIN. [Suspect]
     Active Substance: PREGABALIN
     Indication: DEPRESSION
  2. CHLORPROMAZINE. [Suspect]
     Active Substance: CHLORPROMAZINE
     Indication: SCHIZOPHRENIA
     Dosage: 500 MILLIGRAM, OD
     Route: 048
     Dates: start: 2002
  3. METHADONE [Concomitant]
     Active Substance: METHADONE HYDROCHLORIDE
     Indication: DRUG DEPENDENCE
     Dosage: UNK, OD
     Route: 048
     Dates: start: 2002
  4. PREGABALIN. [Suspect]
     Active Substance: PREGABALIN
     Indication: ANXIETY
     Dosage: 150 MILLIGRAM, OD
     Route: 065
     Dates: start: 2016
  5. SILDENAFIL. [Concomitant]
     Active Substance: SILDENAFIL
     Indication: ERECTILE DYSFUNCTION
     Dosage: 100 MILLIGRAM
     Route: 048
     Dates: start: 20170522
  6. INCRUSE ELLIPTA [Concomitant]
     Active Substance: UMECLIDINIUM BROMIDE
     Indication: ASTHMA
     Dosage: UNK
     Route: 048
     Dates: start: 2002
  7. CHLORPROMAZINE. [Suspect]
     Active Substance: CHLORPROMAZINE
     Dosage: 500 MILLIGRAM, OD
     Route: 065
     Dates: start: 2011
  8. PREGABALIN. [Suspect]
     Active Substance: PREGABALIN
     Indication: SCHIZOPHRENIA
     Dosage: 150 MILLIGRAM, OD
     Route: 048
     Dates: start: 2014
  9. DIAMORPHINE [Suspect]
     Active Substance: DIAMORPHINE
     Indication: PRODUCT USED FOR UNKNOWN INDICATION
     Dosage: UNK
     Route: 065
     Dates: start: 201905
  10. MIRTAZAPINE. [Concomitant]
     Active Substance: MIRTAZAPINE
     Indication: SCHIZOPHRENIA
     Dosage: 45 MILLIGRAM, OD
     Route: 048
     Dates: start: 2014
  11. RELVAR ELLIPTA [Concomitant]
     Active Substance: FLUTICASONE FUROATE\VILANTEROL TRIFENATATE
     Indication: ASTHMA
     Dosage: UNK
     Route: 065
     Dates: start: 2002
  12. SALBUTAMOL [Concomitant]
     Active Substance: ALBUTEROL
     Indication: ASTHMA
     Dosage: UNK
     Route: 048
     Dates: start: 2002
  13. CLOZARIL [Suspect]
     Active Substance: CLOZAPINE
     Indication: SCHIZOPHRENIA
     Dosage: 450 MILLIGRAM, OD
     Route: 048
     Dates: start: 20020319

REACTIONS (6)
  - Blood folate decreased [Recovered/Resolved]
  - Death [Fatal]
  - Pulmonary congestion [Unknown]
  - Malaise [Unknown]
  - Mean cell volume increased [Recovered/Resolved]
  - Thrombocytopenia [Recovered/Resolved]

NARRATIVE: CASE EVENT DATE: 20171020
